FAERS Safety Report 19975785 (Version 1)
Quarter: 2021Q4

REPORT INFORMATION
  Report Type: Spontaneous
  Country: US (occurrence: US)
  Receive Date: 20211021
  Receipt Date: 20211021
  Transmission Date: 20220304
  Serious: Yes (Death, Hospitalization)
  Sender: FDA-Public Use
  Company Number: US-MDD US OPERATIONS-MDD202110-002109

PATIENT
  Age: 74 Year
  Sex: Female

DRUGS (1)
  1. APOKYN [Suspect]
     Active Substance: APOMORPHINE HYDROCHLORIDE
     Indication: Parkinson^s disease
     Dosage: 0.5 ML
     Dates: start: 2019

REACTIONS (2)
  - Cerebrovascular accident [Fatal]
  - Thrombosis [Fatal]

NARRATIVE: CASE EVENT DATE: 20211003
